FAERS Safety Report 14166723 (Version 1)
Quarter: 2017Q4

REPORT INFORMATION
  Report Type: Spontaneous
  Country: US (occurrence: US)
  Receive Date: 20171107
  Receipt Date: 20171107
  Transmission Date: 20180321
  Serious: No
  Sender: FDA-Public Use
  Company Number: US-SHIRE-US201722014

PATIENT
  Sex: Male

DRUGS (1)
  1. VYVANSE [Suspect]
     Active Substance: LISDEXAMFETAMINE DIMESYLATE
     Indication: PRODUCT USED FOR UNKNOWN INDICATION
     Dosage: 60 MG, 1X/DAY:QD
     Route: 048

REACTIONS (7)
  - Decreased appetite [Unknown]
  - Nausea [Unknown]
  - Dizziness [Unknown]
  - Feeling cold [Unknown]
  - Heart rate increased [Unknown]
  - Feeling jittery [Unknown]
  - Hypersensitivity [Unknown]
